FAERS Safety Report 8871721 (Version 1)
Quarter: 2012Q4

REPORT INFORMATION
  Report Type: 
  Country: US (occurrence: US)
  Receive Date: 20121026
  Receipt Date: 20121026
  Transmission Date: 20130627
  Serious: No
  Sender: FDA-Public Use
  Company Number: US-AMGEN-USASP2012048607

PATIENT
  Age: 64 Year
  Sex: Female
  Weight: 84.81 kg

DRUGS (6)
  1. ENBREL [Suspect]
     Indication: PRODUCT USED FOR UNKNOWN INDICATION
     Dosage: 50 mg, qwk
     Route: 058
  2. METHOTREXATE [Concomitant]
     Dosage: 2.5 mg, UNK
  3. SYNTHROID [Concomitant]
     Dosage: 112 MCG
  4. SIMVASTATIN [Concomitant]
     Dosage: 10 mg, UNK
  5. SULINDAC [Concomitant]
     Dosage: 200 mg, UNK
  6. FOLIC ACID [Concomitant]
     Dosage: 20 mg, UNK

REACTIONS (4)
  - Muscle spasms [Unknown]
  - Injection site erythema [Unknown]
  - Injection site pruritus [Unknown]
  - Injection site rash [Unknown]
